FAERS Safety Report 23986382 (Version 1)
Quarter: 2024Q2

REPORT INFORMATION
  Report Type: Spontaneous
  Country: US (occurrence: None)
  Receive Date: 20240617
  Receipt Date: 20240617
  Transmission Date: 20240716
  Serious: Yes (Death)
  Sender: FDA-Public Use
  Company Number: None

PATIENT
  Age: 65 Year
  Sex: Male
  Weight: 87.75 kg

DRUGS (6)
  1. LISINOPRIL [Suspect]
     Active Substance: LISINOPRIL
     Indication: Hypertensive heart disease
     Dosage: OTHER QUANTITY : 1 TABLET(S);?
     Route: 048
  2. DOXEPIN [Concomitant]
  3. amlopdipine [Concomitant]
  4. FLUOXETINE [Concomitant]
  5. LEVOTHYROXINE [Concomitant]
  6. OMEGA-3 ACIDS [Concomitant]
     Active Substance: OMEGA-3 FATTY ACIDS

REACTIONS (2)
  - Angioedema [None]
  - Angioedema [None]

NARRATIVE: CASE EVENT DATE: 20240415
